FAERS Safety Report 20742086 (Version 1)
Quarter: 2022Q2

REPORT INFORMATION
  Report Type: Spontaneous
  Country: NL (occurrence: NL)
  Receive Date: 20220423
  Receipt Date: 20220423
  Transmission Date: 20220721
  Serious: Yes (Other)
  Sender: FDA-Public Use
  Company Number: None

PATIENT
  Sex: Female

DRUGS (4)
  1. EZETIMIBE [Suspect]
     Active Substance: EZETIMIBE
     Indication: Coronary artery disease
     Dosage: 10 MILLIGRAM DAILY; 1D1T, FORM STRENGTH - 10MG / BRAND NAME NOT SPECIFIED, DURATION-126 DAYS
     Dates: start: 20210928, end: 20220201
  2. ROSUVASTATIN [Suspect]
     Active Substance: ROSUVASTATIN
     Indication: Coronary artery disease
     Dosage: 10 MILLIGRAM DAILY; 1D1T, FORM STRENGTH 10MG / BRAND NAME NOT SPECIFIED, DURATION-126 DAYS
     Dates: start: 20210928, end: 20220201
  3. PANTOPRAZOLE SODIUM [Concomitant]
     Active Substance: PANTOPRAZOLE SODIUM
     Dosage: FORM STRENGTH- 40 MG / BRAND NAME NOT SPECIFIED, THERAPY START DATE AND END DATE: ASKU
  4. ASPIRIN [Concomitant]
     Active Substance: ASPIRIN
     Dosage: FORM STRENGTH- 80MG / BRAND NAME NOT SPECIFIED, THERAPY START DATE AND END DATE: ASKU

REACTIONS (2)
  - Dyspnoea [Recovered/Resolved]
  - Fatigue [Recovered/Resolved]
